FAERS Safety Report 10015420 (Version 3)
Quarter: 2014Q2

REPORT INFORMATION
  Report Type: Report from Study
  Country: JP (occurrence: JP)
  Receive Date: 20140317
  Receipt Date: 20140424
  Transmission Date: 20141212
  Serious: Yes (Hospitalization)
  Sender: FDA-Public Use
  Company Number: JP-B.I. PHARMACEUTICALS,INC./RIDGEFIELD-2014-BI-10703NB

PATIENT
  Age: 65 Year
  Sex: Male
  Weight: 84 kg

DRUGS (9)
  1. PRAZAXA [Suspect]
     Indication: CEREBROVASCULAR ACCIDENT PROPHYLAXIS
     Dosage: 220 MG
     Route: 048
     Dates: start: 20120316, end: 20120918
  2. PRAZAXA [Suspect]
     Dosage: 220 MG
     Route: 048
     Dates: start: 20120921
  3. ADALAT-CR / NIFEDIPINE [Concomitant]
     Dosage: 40 MG
     Route: 048
  4. PREMINENT / LOSARTAN POTASSIUM_HYDROCHLOROTHIAZIDE [Concomitant]
     Dosage: 1 ANZ
     Route: 048
  5. SELARA / EPLERENONE [Concomitant]
     Dosage: 50 MG
     Route: 048
  6. LIPITOR / ATORVASTATIN CALCIUM HYDRATE [Concomitant]
     Dosage: 10 MG
     Route: 048
  7. BAYASPIRIN / ASPIRIN [Concomitant]
     Indication: PROPHYLAXIS
     Dosage: 100 MG
     Route: 048
  8. NORVASC / AMLODIPINE BESILATE [Concomitant]
     Dosage: 10 MG
     Route: 048
  9. HEPARIN AND PREPARATIONS / HEPARIN AND PREPARATIONS [Concomitant]
     Route: 042
     Dates: start: 20120918

REACTIONS (3)
  - Lumbar spinal stenosis [Recovered/Resolved]
  - Brain neoplasm [Recovered/Resolved]
  - Lung carcinoma cell type unspecified recurrent [Not Recovered/Not Resolved]
